FAERS Safety Report 13460697 (Version 1)
Quarter: 2017Q2

REPORT INFORMATION
  Report Type: Spontaneous
  Country: US (occurrence: US)
  Receive Date: 20170419
  Receipt Date: 20170419
  Transmission Date: 20170830
  Serious: No
  Sender: FDA-Public Use
  Company Number: None

PATIENT
  Age: 57 Year
  Sex: Male
  Weight: 86.18 kg

DRUGS (1)
  1. NIVOLUMAB [Suspect]
     Active Substance: NIVOLUMAB
     Indication: SMALL CELL LUNG CANCER
     Dosage: FREQUENCY - OTHER
     Route: 042
     Dates: start: 20170222, end: 20170414

REACTIONS (7)
  - Infusion related reaction [None]
  - Blood pressure increased [None]
  - Hypertension [None]
  - Chills [None]
  - Dyspnoea [None]
  - Erythema multiforme [None]
  - Tachycardia [None]

NARRATIVE: CASE EVENT DATE: 20170414
